FAERS Safety Report 22089485 (Version 1)
Quarter: 2023Q1

REPORT INFORMATION
  Report Type: Spontaneous
  Country: US (occurrence: US)
  Receive Date: 20230313
  Receipt Date: 20230313
  Transmission Date: 20230417
  Serious: No
  Sender: FDA-Public Use
  Company Number: US-MERCK-0912USA03647

PATIENT
  Age: 63 Year
  Sex: Male

DRUGS (10)
  1. JANUMET [Suspect]
     Active Substance: METFORMIN HYDROCHLORIDE\SITAGLIPTIN PHOSPHATE
     Indication: Blood glucose
     Dosage: 1000MG/50
     Route: 048
     Dates: start: 20090929
  2. JANUMET [Suspect]
     Active Substance: METFORMIN HYDROCHLORIDE\SITAGLIPTIN PHOSPHATE
     Indication: Diabetes mellitus
  3. MK-9359 [Concomitant]
  4. ASACOL [Concomitant]
     Active Substance: MESALAMINE
  5. GLYBURIDE [Concomitant]
     Active Substance: GLYBURIDE
  6. LEXAPRO [Concomitant]
     Active Substance: ESCITALOPRAM OXALATE
  7. XANAX [Concomitant]
     Active Substance: ALPRAZOLAM
  8. GABAPENTIN [Concomitant]
     Active Substance: GABAPENTIN
  9. PRINIVIL [Concomitant]
     Active Substance: LISINOPRIL
  10. TRICOR [Concomitant]
     Active Substance: FENOFIBRATE

REACTIONS (6)
  - Heart rate increased [Not Recovered/Not Resolved]
  - Loss of therapeutic response [Not Recovered/Not Resolved]
  - Glycosylated haemoglobin increased [Not Recovered/Not Resolved]
  - Bladder disorder [Unknown]
  - Blood triglycerides increased [Not Recovered/Not Resolved]
  - Weight decreased [Not Recovered/Not Resolved]

NARRATIVE: CASE EVENT DATE: 20091020
